FAERS Safety Report 7548960-4 (Version None)
Quarter: 2011Q2

REPORT INFORMATION
  Report Type: 
  Country: None (occurrence: None)
  Receive Date: 20110615
  Receipt Date: 20110613
  Transmission Date: 20111010
  Serious: Yes (Other)
  Sender: FDA-Public Use
  Company Number: US-PFIZER INC-2011128828

PATIENT
  Sex: Female

DRUGS (4)
  1. ADVIL LIQUI-GELS [Suspect]
     Indication: HEADACHE
     Dosage: UNK
     Route: 048
     Dates: end: 20101201
  2. NAPROXEN (ALEVE) [Suspect]
     Indication: ARTHRITIS
     Dosage: 220 MG, DAILY
     Dates: end: 20101201
  3. CELEBREX [Concomitant]
     Indication: ARTHRITIS
     Dosage: UNK
     Route: 048
  4. ADVIL LIQUI-GELS [Suspect]
     Indication: ARTHRITIS

REACTIONS (2)
  - PHARYNGEAL ERYTHEMA [None]
  - GASTROOESOPHAGEAL REFLUX DISEASE [None]
